FAERS Safety Report 5376724-9 (Version None)
Quarter: 2007Q2

REPORT INFORMATION
  Report Type: 
  Country: None (occurrence: None)
  Receive Date: 20070629
  Receipt Date: 20070629
  Transmission Date: 20071010
  Serious: No
  Sender: FDA-Public Use
  Company Number: None

PATIENT
  Age: 53 Year
  Sex: Male
  Weight: 91 kg

DRUGS (1)
  1. MILRINONE BAXTER PREMIXED [Suspect]
     Indication: CARDIOMYOPATHY
     Dosage: 20 MG, N 100ML IV CONTINUOUS IV
     Route: 042
     Dates: start: 20070627

REACTIONS (4)
  - ERYTHEMA [None]
  - INFUSION RELATED REACTION [None]
  - VEIN PAIN [None]
  - VENOUS INSUFFICIENCY [None]
